FAERS Safety Report 19766295 (Version 1)
Quarter: 2021Q3

REPORT INFORMATION
  Report Type: Spontaneous
  Country: PT (occurrence: PT)
  Receive Date: 20210831
  Receipt Date: 20210831
  Transmission Date: 20211014
  Serious: Yes (Other)
  Sender: FDA-Public Use
  Company Number: PT-AUROBINDO-AUR-APL-2021-036460

PATIENT
  Age: 57 Year
  Sex: Female
  Weight: 62 kg

DRUGS (35)
  1. DIAZEPAM. [Concomitant]
     Active Substance: DIAZEPAM
     Indication: PRODUCT USED FOR UNKNOWN INDICATION
     Dosage: UNK (ONGOING = CHECKED)
     Route: 065
     Dates: start: 20210107
  2. METOCLOPRAMIDE. [Concomitant]
     Active Substance: METOCLOPRAMIDE
     Indication: PRODUCT USED FOR UNKNOWN INDICATION
     Dosage: UNK(ONGOING = CHECKED)
     Route: 065
     Dates: start: 20190521
  3. QUETIAPINE. [Concomitant]
     Active Substance: QUETIAPINE
     Indication: PRODUCT USED FOR UNKNOWN INDICATION
     Dosage: UNK(ONGOING = CHECKED)
     Route: 065
     Dates: start: 20210107
  4. ESCITALOPRAM [Concomitant]
     Active Substance: ESCITALOPRAM OXALATE
     Indication: PRODUCT USED FOR UNKNOWN INDICATION
     Dosage: UNK(ONGOING = CHECKED)
     Route: 065
     Dates: start: 20180305
  5. IRBESARTAN. [Concomitant]
     Active Substance: IRBESARTAN
     Indication: PRODUCT USED FOR UNKNOWN INDICATION
     Dosage: UNK(ONGOING = CHECKED)
     Route: 065
  6. TRAMADOL. [Concomitant]
     Active Substance: TRAMADOL
     Indication: PRODUCT USED FOR UNKNOWN INDICATION
     Dosage: UNK(ONGOING = NOT CHECKED)
     Route: 065
     Dates: start: 20190329
  7. TRAZODONE [Concomitant]
     Active Substance: TRAZODONE HYDROCHLORIDE
     Indication: PRODUCT USED FOR UNKNOWN INDICATION
     Dosage: UNK(ONGOING = CHECKED)
     Route: 065
  8. OMEPRAZOLE. [Concomitant]
     Active Substance: OMEPRAZOLE
     Indication: PRODUCT USED FOR UNKNOWN INDICATION
     Dosage: UNK(ONGOING = CHECKED)
     Route: 065
  9. EXEMESTANE. [Suspect]
     Active Substance: EXEMESTANE
     Indication: BREAST CANCER
     Dosage: 25 MILLIGRAM, ONCE A DAY
     Route: 048
     Dates: start: 20210614
  10. TRASTUZUMAB. [Suspect]
     Active Substance: TRASTUZUMAB
     Indication: BREAST CANCER
     Dosage: 500 MILLIGRAM(3 WEEK)MOST RECENT DOSE PRIOR TO THE EVENT: 07/JAN/2021
     Route: 041
     Dates: start: 20190308, end: 20190308
  11. CLEMASTINE [Concomitant]
     Active Substance: CLEMASTINE
     Indication: PRODUCT USED FOR UNKNOWN INDICATION
     Dosage: UNK(ONGOING = CHECKED)
     Route: 065
     Dates: start: 20190308
  12. PREDNISOLONE. [Concomitant]
     Active Substance: PREDNISOLONE
     Indication: PRODUCT USED FOR UNKNOWN INDICATION
     Dosage: UNK(ONGOING = CHECKED)
     Route: 065
     Dates: start: 20190429
  13. PROFENID [Concomitant]
     Active Substance: KETOPROFEN
     Indication: PRODUCT USED FOR UNKNOWN INDICATION
     Dosage: UNK(ONGOING = CHECKED)
     Route: 065
     Dates: start: 20200513
  14. FUROSEMIDE. [Concomitant]
     Active Substance: FUROSEMIDE
     Indication: PRODUCT USED FOR UNKNOWN INDICATION
     Dosage: UNK
     Route: 065
     Dates: start: 20190429
  15. FLUCONAZOLE. [Concomitant]
     Active Substance: FLUCONAZOLE
     Indication: ONYCHOLYSIS
     Dosage: UNK(ONGOING = NOT CHECKED)
     Route: 065
     Dates: start: 20210429
  16. BISOPROLOL [Concomitant]
     Active Substance: BISOPROLOL
     Indication: PRODUCT USED FOR UNKNOWN INDICATION
     Dosage: UNK(ONGOING = CHECKED)
     Route: 065
  17. RIVOTRIL [Concomitant]
     Active Substance: CLONAZEPAM
     Indication: PRODUCT USED FOR UNKNOWN INDICATION
     Dosage: UNK(ONGOING = CHECKED)
     Route: 065
  18. ZOLEDRONIC ACID [Concomitant]
     Active Substance: ZOLEDRONIC ACID
     Indication: PRODUCT USED FOR UNKNOWN INDICATION
     Dosage: UNK(ONGOING = CHECKED)
     Route: 065
     Dates: start: 20200401
  19. NEUROBION [Concomitant]
     Active Substance: CYANOCOBALAMIN\PYRIDOXINE\THIAMINE
     Indication: NEUROPATHY PERIPHERAL
     Dosage: UNK(ONGOING = CHECKED)
     Route: 065
     Dates: start: 20210429
  20. ADALGUR N [Concomitant]
     Active Substance: ACETAMINOPHEN\THIOCOLCHICOSIDE
     Indication: PRODUCT USED FOR UNKNOWN INDICATION
     Dosage: UNK(ONGOING = CHECKED)
     Route: 065
     Dates: start: 20200513
  21. ATORVASTATIN [Concomitant]
     Active Substance: ATORVASTATIN
     Indication: PRODUCT USED FOR UNKNOWN INDICATION
     Dosage: UNK(ONGOING = CHECKED)
     Route: 065
  22. DOCETAXEL. [Suspect]
     Active Substance: DOCETAXEL
     Indication: BREAST CANCER
     Dosage: 120 MILLIGRAM (3 WEEK)(DATE OF MOST RECENT DOSE: 04/JUL/2019)
     Route: 042
     Dates: start: 20190308
  23. FUSIDIC ACID [Concomitant]
     Active Substance: FUSIDIC ACID
     Indication: ONYCHOLYSIS
     Dosage: UNK(ONGOING = NOT CHECKED)
     Route: 065
     Dates: start: 20210429
  24. LACTULOSE. [Concomitant]
     Active Substance: LACTULOSE
     Indication: PRODUCT USED FOR UNKNOWN INDICATION
     Dosage: UNK(ONGOING = CHECKED)
     Route: 065
  25. DEXAMETHASONE. [Concomitant]
     Active Substance: DEXAMETHASONE
     Indication: PRODUCT USED FOR UNKNOWN INDICATION
     Dosage: UNK(ONGOING = CHECKED)
     Route: 065
     Dates: start: 20201210
  26. CAPECITABINE. [Suspect]
     Active Substance: CAPECITABINE
     Indication: BREAST CANCER
     Dosage: 1450 MILLIGRAM(OTHER, DATE OF MOST RECENT DOSE: 24/MAY/2021)
     Route: 048
     Dates: start: 20210201
  27. LEVETIRACETAM. [Concomitant]
     Active Substance: LEVETIRACETAM
     Indication: PRODUCT USED FOR UNKNOWN INDICATION
     Dosage: UNK(ONGOING = CHECKED)
     Route: 065
     Dates: start: 20210129
  28. METOCLOPRAMIDE. [Concomitant]
     Active Substance: METOCLOPRAMIDE
     Dosage: UNK(ONGOING = CHECKED)
     Route: 065
     Dates: start: 20210211
  29. TRASTUZUMAB EMTANSINE [Suspect]
     Active Substance: ADO-TRASTUZUMAB EMTANSINE
     Indication: BREAST CANCER
     Dosage: 220 MILLIGRAM(3 WEEK)
     Route: 042
     Dates: start: 20190726, end: 20201119
  30. PERTUZUMAB. [Suspect]
     Active Substance: PERTUZUMAB
     Indication: BREAST CANCER
     Dosage: 840 MILLIGRAM(3 WEEK)(MOST RECENT DOSE PRIOR TO THE EVENT: 08/APR/2019)
     Route: 042
     Dates: start: 20190308, end: 20190308
  31. METHYLPREDNISOLONE. [Concomitant]
     Active Substance: METHYLPREDNISOLONE
     Indication: PRODUCT USED FOR UNKNOWN INDICATION
     Dosage: UNK(ONGOING = CHECKED)
     Route: 065
     Dates: start: 20190308
  32. DESLORATADINE. [Concomitant]
     Active Substance: DESLORATADINE
     Indication: PRODUCT USED FOR UNKNOWN INDICATION
     Dosage: UNK(ONGOING = CHECKED)
     Route: 065
  33. HYDROXYZINE [Concomitant]
     Active Substance: HYDROXYZINE HYDROCHLORIDE
     Indication: PRODUCT USED FOR UNKNOWN INDICATION
     Dosage: UNK(ONGOING = CHECKED)
     Route: 065
     Dates: start: 20190726
  34. LOPERAMIDE [Concomitant]
     Active Substance: LOPERAMIDE
     Indication: PRODUCT USED FOR UNKNOWN INDICATION
     Dosage: UNK(ONGOING = CHECKED)
     Route: 065
     Dates: start: 20210129
  35. NYSTATIN. [Concomitant]
     Active Substance: NYSTATIN
     Indication: PRODUCT USED FOR UNKNOWN INDICATION
     Dosage: UNK(ONGOING = CHECKED)
     Route: 065
     Dates: start: 20190521

REACTIONS (3)
  - Onycholysis [Recovered/Resolved]
  - Neuropathy peripheral [Not Recovered/Not Resolved]
  - Palmar-plantar erythrodysaesthesia syndrome [Recovered/Resolved]

NARRATIVE: CASE EVENT DATE: 20210429
